FAERS Safety Report 13877131 (Version 2)
Quarter: 2017Q3

REPORT INFORMATION
  Report Type: Spontaneous
  Country: AU (occurrence: AU)
  Receive Date: 20170817
  Receipt Date: 20170824
  Transmission Date: 20171127
  Serious: Yes (Other)
  Sender: FDA-Public Use
  Company Number: AU-LPDUSPRD-20170989

PATIENT
  Age: 43 Year
  Sex: Female

DRUGS (1)
  1. FERINJECT [Suspect]
     Active Substance: FERRIC CARBOXYMALTOSE
     Dosage: 1000 MG
     Route: 042
     Dates: start: 20170628, end: 20170628

REACTIONS (9)
  - Choking [Unknown]
  - Dyspnoea [Unknown]
  - Paraesthesia [Unknown]
  - Swelling [Unknown]
  - Cough [Unknown]
  - Dysgeusia [Unknown]
  - Throat tightness [Unknown]
  - Product quality issue [Unknown]
  - Flushing [Unknown]

NARRATIVE: CASE EVENT DATE: 20170628
